FAERS Safety Report 20174235 (Version 1)
Quarter: 2021Q4

REPORT INFORMATION
  Report Type: Spontaneous
  Country: US (occurrence: US)
  Receive Date: 20211213
  Receipt Date: 20211213
  Transmission Date: 20220303
  Serious: No
  Sender: FDA-Public Use
  Company Number: US-TEVA-2021-US-1986029

PATIENT
  Sex: Male

DRUGS (2)
  1. ARMONAIR DIGIHALER [Suspect]
     Active Substance: FLUTICASONE PROPIONATE
     Route: 065
  2. ARMONAIR DIGIHALER [Suspect]
     Active Substance: FLUTICASONE PROPIONATE

REACTIONS (1)
  - Drug ineffective [Unknown]
